FAERS Safety Report 10022049 (Version 1)
Quarter: 2013Q4

REPORT INFORMATION
  Report Type: Spontaneous
  Country: JP (occurrence: None)
  Receive Date: 20131211
  Receipt Date: 20131211
  Transmission Date: 20140711
  Serious: Yes (Other)
  Sender: FDA-Public Use
  Company Number: SP07245

PATIENT
  Age: 80 Year
  Sex: 0

DRUGS (1)
  1. MOVIPREP [Suspect]
     Indication: BOWEL PREPARATION
     Route: 048
     Dates: start: 20131025, end: 20131025

REACTIONS (4)
  - Syncope [None]
  - Shock [None]
  - Dehydration [None]
  - Slow response to stimuli [None]
